FAERS Safety Report 15003678 (Version 2)
Quarter: 2018Q3

REPORT INFORMATION
  Report Type: Spontaneous
  Country: US (occurrence: US)
  Receive Date: 20180613
  Receipt Date: 20180703
  Transmission Date: 20181010
  Serious: Yes (Hospitalization)
  Sender: FDA-Public Use
  Company Number: US-ASTELLAS-2018US026011

PATIENT
  Age: 6 Month
  Sex: Female

DRUGS (10)
  1. TACROLIMUS. [Suspect]
     Active Substance: TACROLIMUS
     Dosage: 1 MG PER PEG, TWICE DAILY (TACROLIMUS DOSE WAS 0.5 MG/ML SUSPENSION, 2.0 MG TOTAL)
     Route: 065
     Dates: start: 20160601, end: 20160705
  2. MYCOPHENOLATE [Suspect]
     Active Substance: MYCOPHENOLIC ACID
     Indication: HEART TRANSPLANT
     Dosage: UNK UNK, UNKNOWN FREQ.
     Route: 065
  3. TRIMETHOPRIM SULFAMETHOXAZOLE [Suspect]
     Active Substance: SULFAMETHOXAZOLE\TRIMETHOPRIM
     Indication: PRODUCT USED FOR UNKNOWN INDICATION
     Dosage: UNK UNK, UNKNOWN FREQ.
     Route: 065
  4. TACROLIMUS. [Suspect]
     Active Substance: TACROLIMUS
     Dosage: 0.25 MG PER PEG, TWICE DAILY (0.5 MG TOTAL)
     Route: 065
     Dates: start: 20160723
  5. VALGANCICLOVIR. [Suspect]
     Active Substance: VALGANCICLOVIR
     Indication: PRODUCT USED FOR UNKNOWN INDICATION
     Dosage: UNK UNK, UNKNOWN FREQ.
     Route: 065
  6. TACROLIMUS. [Suspect]
     Active Substance: TACROLIMUS
     Dosage: 0.3 MG PER PEG QAM, 0.28 MG PER PEG QPM (0.58 MG TOTAL), TWICE DAILY
     Route: 065
  7. TACROLIMUS. [Suspect]
     Active Substance: TACROLIMUS
     Indication: HEART TRANSPLANT
     Dosage: UNK, UNKNOWN FREQ.
     Route: 065
     Dates: start: 20160315
  8. TACROLIMUS. [Suspect]
     Active Substance: TACROLIMUS
     Dosage: 1.0 MG PER PEG, TWICE DAILY (2.0 MG DAILY)
     Route: 065
     Dates: end: 20160721
  9. TACROLIMUS. [Suspect]
     Active Substance: TACROLIMUS
     Dosage: 0.75 MG, TWICE DAILY (1.5 MG TOTAL)
     Route: 048
  10. PREDNISOLONE. [Concomitant]
     Active Substance: PREDNISOLONE
     Indication: HEART TRANSPLANT
     Dosage: UNK UNK, UNKNOWN FREQ.
     Route: 065

REACTIONS (6)
  - Pneumatosis intestinalis [Recovered/Resolved]
  - Neutropenic colitis [Recovered/Resolved]
  - Epstein-Barr virus infection [Recovering/Resolving]
  - Immunosuppressant drug level increased [Recovered/Resolved]
  - Gastroenteritis viral [Recovered/Resolved]
  - Selective eating disorder [Not Recovered/Not Resolved]

NARRATIVE: CASE EVENT DATE: 201512
